FAERS Safety Report 11323154 (Version 1)
Quarter: 2015Q3

REPORT INFORMATION
  Report Type: Spontaneous
  Country: US (occurrence: US)
  Receive Date: 20150730
  Receipt Date: 20150730
  Transmission Date: 20151125
  Serious: No
  Sender: FDA-Public Use
  Company Number: US-MYLANLABS-2014M1006452

PATIENT
  Sex: Female

DRUGS (4)
  1. VITAMIN D3 [Concomitant]
     Active Substance: CHOLECALCIFEROL
     Indication: SUPPLEMENTATION THERAPY
     Dosage: 10000 IU, QD
  2. 7-KETO-DHEA [Concomitant]
     Active Substance: PRASTERONE
     Indication: SUPPLEMENTATION THERAPY
     Dosage: 50 ?G, QD
  3. IODINE [Concomitant]
     Active Substance: IODINE
     Indication: SUPPLEMENTATION THERAPY
     Dosage: 2 ?G, QD
  4. LEVOTHYROXINE SODIUM TABLETS, USP [Suspect]
     Active Substance: LEVOTHYROXINE SODIUM
     Indication: THYROID THERAPY
     Dosage: 25 ?G, QD
     Route: 048
     Dates: start: 20140925

REACTIONS (1)
  - Abdominal pain [Recovered/Resolved]

NARRATIVE: CASE EVENT DATE: 20140925
